FAERS Safety Report 6198081-0 (Version None)
Quarter: 2009Q2

REPORT INFORMATION
  Report Type: 
  Country: None (occurrence: None)
  Receive Date: 20090521
  Receipt Date: 20090515
  Transmission Date: 20091009
  Serious: No
  Sender: FDA-Public Use
  Company Number: US-B.I. PHARMACEUTICALS,INC./RIDGEFIELD-2009-BP-05498BP

PATIENT
  Sex: Female

DRUGS (12)
  1. ATROVENT [Suspect]
     Indication: SINUS DISORDER
     Route: 045
     Dates: start: 20090422, end: 20090428
  2. TOPROL-XL [Concomitant]
  3. LOTENSIN [Concomitant]
  4. SYNTHROID [Concomitant]
  5. HYDROCHLOROTHIAZIDE [Concomitant]
  6. DILTIAZEM [Concomitant]
  7. ASPIRIN [Concomitant]
  8. GLUCOVANCE [Concomitant]
  9. GLYBURIDE [Concomitant]
  10. SIMVASTATIN [Concomitant]
  11. COUMADIN [Concomitant]
  12. CLARITIN [Concomitant]

REACTIONS (3)
  - ASTHENIA [None]
  - INFECTION [None]
  - INFLUENZA LIKE ILLNESS [None]
